FAERS Safety Report 8985336 (Version 2)
Quarter: 2013Q2

REPORT INFORMATION
  Report Type: Spontaneous
  Country: CA (occurrence: CA)
  Receive Date: 20121226
  Receipt Date: 20130412
  Transmission Date: 20140414
  Serious: Yes (Other)
  Sender: FDA-Public Use
  Company Number: PHHY2010CA83335

PATIENT
  Sex: Female

DRUGS (3)
  1. ACLASTA [Suspect]
     Indication: OSTEOPOROSIS
     Dosage: UNK
     Route: 042
     Dates: start: 20091207
  2. ACLASTA [Suspect]
     Dosage: UNK
     Route: 042
     Dates: start: 20110125
  3. ACLASTA [Suspect]
     Dosage: UNK
     Route: 042
     Dates: start: 20120125

REACTIONS (5)
  - Systemic lupus erythematosus [Unknown]
  - Influenza [Not Recovered/Not Resolved]
  - Nausea [Unknown]
  - Headache [Unknown]
  - Malaise [Unknown]
